FAERS Safety Report 10080790 (Version 2)
Quarter: 2014Q2

REPORT INFORMATION
  Report Type: Spontaneous
  Country: US (occurrence: US)
  Receive Date: 20140416
  Receipt Date: 20140424
  Transmission Date: 20141212
  Serious: Yes (Hospitalization)
  Sender: FDA-Public Use
  Company Number: US-JNJFOC-20140406377

PATIENT
  Age: 86 Year
  Sex: Male
  Weight: 82 kg

DRUGS (10)
  1. XARELTO [Suspect]
     Indication: CEREBROVASCULAR ACCIDENT PROPHYLAXIS
     Route: 048
  2. XARELTO [Suspect]
     Indication: ATRIAL FIBRILLATION
     Route: 048
  3. MAGNESIUM CHLORIDE [Concomitant]
     Route: 065
  4. AMBIEN [Concomitant]
     Route: 065
  5. BETAMETHASONE [Concomitant]
     Route: 065
  6. MVI [Concomitant]
     Route: 065
  7. ZYRTEC [Concomitant]
     Route: 065
  8. LANOXIN [Concomitant]
     Route: 065
  9. AZOR [Concomitant]
     Route: 065
  10. PROTONIX [Concomitant]
     Route: 065

REACTIONS (4)
  - Anaemia [Recovering/Resolving]
  - Gastrointestinal haemorrhage [Recovered/Resolved]
  - Pneumonia [Unknown]
  - Pleural effusion [Recovering/Resolving]
